FAERS Safety Report 10094018 (Version 4)
Quarter: 2014Q2

REPORT INFORMATION
  Report Type: Report from Study
  Country: FI (occurrence: FI)
  Receive Date: 20140422
  Receipt Date: 20140626
  Transmission Date: 20141212
  Serious: Yes (Other)
  Sender: FDA-Public Use
  Company Number: FI-AMGEN INC.-FINNI2014027849

PATIENT
  Age: 84 Year
  Sex: Female

DRUGS (5)
  1. XGEVA [Suspect]
     Indication: METASTASES TO BONE
     Dosage: 120 MG, UNK
     Route: 058
     Dates: start: 20120613, end: 20140402
  2. DENOSUMAB [Suspect]
     Indication: PRODUCT USED FOR UNKNOWN INDICATION
     Dosage: UNK
     Route: 065
  3. PLAVIX [Concomitant]
  4. ARIMIDEX [Concomitant]
     Dosage: UNK
     Dates: start: 200907
  5. BONEFOS [Concomitant]
     Dosage: UNK
     Dates: start: 200907

REACTIONS (1)
  - Osteonecrosis of jaw [Not Recovered/Not Resolved]
